FAERS Safety Report 5451990-X (Version None)
Quarter: 2007Q3

REPORT INFORMATION
  Report Type: 
  Country: None (occurrence: None)
  Receive Date: 20070912
  Receipt Date: 20070831
  Transmission Date: 20080115
  Serious: Yes (Hospitalization)
  Sender: FDA-Public Use
  Company Number: GXKR2007SA07597

PATIENT
  Age: 39 Year
  Sex: Female

DRUGS (2)
  1. CIPROFLOXACIN [Suspect]
     Indication: URINARY TRACT INFECTION
     Dosage: 500 MG, BID, ORAL
     Route: 048
     Dates: start: 19980901
  2. FOSINOPRIL SODIUM [Concomitant]

REACTIONS (14)
  - COGNITIVE DISORDER [None]
  - DEPERSONALISATION [None]
  - DEREALISATION [None]
  - DISORIENTATION [None]
  - DISTURBANCE IN ATTENTION [None]
  - ENCEPHALOPATHY [None]
  - HYPERREFLEXIA [None]
  - HYPOAESTHESIA [None]
  - MEMORY IMPAIRMENT [None]
  - MYOCLONUS [None]
  - PAPILLOEDEMA [None]
  - PARAESTHESIA [None]
  - SOMNOLENCE [None]
  - TREMOR [None]
